FAERS Safety Report 9865272 (Version 1)
Quarter: 2014Q1

REPORT INFORMATION
  Report Type: Spontaneous
  Country: US (occurrence: US)
  Receive Date: 20140203
  Receipt Date: 20140203
  Transmission Date: 20141002
  Serious: No
  Sender: FDA-Public Use
  Company Number: US-ALLERGAN-1300782US

PATIENT
  Age: 68 Year
  Sex: Female

DRUGS (4)
  1. RESTASIS [Suspect]
     Indication: DRY EYE
     Dosage: 2 GTT, UNK
     Route: 047
     Dates: start: 201208
  2. CELEBREX [Concomitant]
     Indication: OSTEOARTHRITIS
     Dosage: 100 MG, UNK
     Route: 048
  3. PREMARIN                           /00073001/ [Concomitant]
     Indication: HORMONE REPLACEMENT THERAPY
     Dosage: UNK
  4. DAILY VITAMINS [Concomitant]
     Indication: SUPPLEMENTATION THERAPY

REACTIONS (2)
  - Inappropriate schedule of drug administration [Unknown]
  - Eye irritation [Recovering/Resolving]
